FAERS Safety Report 8078678-3 (Version None)
Quarter: 2012Q1

REPORT INFORMATION
  Report Type: 
  Country: None (occurrence: None)
  Receive Date: 20120124
  Receipt Date: 20120112
  Transmission Date: 20120608
  Serious: Yes (Hospitalization)
  Sender: FDA-Public Use
  Company Number: 2011S1001716

PATIENT
  Age: 71 Year
  Sex: Male

DRUGS (4)
  1. MUCOSAL (ACETYLCYSTEINE) [Suspect]
     Indication: HYPERLIPIDAEMIA
     Dosage: PO
     Route: 048
     Dates: start: 20111101
  2. ASTOMIN /00426502/ (DIMEMORFAN PHOSPHATE) [Suspect]
     Dosage: PO
     Route: 048
     Dates: start: 20111101
  3. ANPLAG (SARPOGRELATE HYDROCHLORIDE) [Suspect]
     Dosage: PO
     Route: 048
  4. LIVALO [Suspect]
     Indication: HYPERLIPIDAEMIA
     Dosage: 1 MG;1X;PO
     Route: 048

REACTIONS (2)
  - NO THERAPEUTIC RESPONSE [None]
  - LUNG DISORDER [None]
